FAERS Safety Report 25576883 (Version 1)
Quarter: 2025Q3

REPORT INFORMATION
  Report Type: Spontaneous
  Country: US (occurrence: None)
  Receive Date: 20250718
  Receipt Date: 20250718
  Transmission Date: 20251021
  Serious: Yes (Hospitalization)
  Sender: FDA-CTU
  Company Number: None

PATIENT
  Age: 64 Year
  Sex: Female
  Weight: 66.2 kg

DRUGS (14)
  1. DOXORUBICIN HYDROCHLORIDE [Suspect]
     Active Substance: DOXORUBICIN HYDROCHLORIDE
     Dates: end: 20250129
  2. IFOSFAMIDE [Suspect]
     Active Substance: IFOSFAMIDE
     Dates: end: 20250130
  3. CARVEDILOL [Concomitant]
     Active Substance: CARVEDILOL
  4. CEFTRIAXONE [Concomitant]
     Active Substance: CEFTRIAXONE
  5. CLONAZEPAM [Concomitant]
     Active Substance: CLONAZEPAM
  6. DRONABINOL [Concomitant]
     Active Substance: DRONABINOL
  7. INSULIN NOS [Concomitant]
     Active Substance: INSULIN NOS
  8. OLANZAPINE [Concomitant]
     Active Substance: OLANZAPINE
  9. OXYCODONE [Concomitant]
     Active Substance: OXYCODONE
  10. PANTOPRAZOLE [Concomitant]
     Active Substance: PANTOPRAZOLE
  11. POLYETHYLENE GLYCOL PACKET [Concomitant]
  12. PROCHLORPERAZINE [Concomitant]
     Active Substance: PROCHLORPERAZINE
  13. SENNA [Concomitant]
     Active Substance: SENNOSIDES
  14. SDIUM ZIRCONIUM CYCLOSILICATE [Concomitant]

REACTIONS (6)
  - Dialysis [None]
  - Cholangitis [None]
  - Cholelithiasis [None]
  - Neutropenia [None]
  - Sepsis [None]
  - Renal failure [None]

NARRATIVE: CASE EVENT DATE: 20250617
